FAERS Safety Report 9398001 (Version 1)
Quarter: 2013Q3

REPORT INFORMATION
  Report Type: Spontaneous
  Country: JP (occurrence: JP)
  Receive Date: 20130712
  Receipt Date: 20130712
  Transmission Date: 20140515
  Serious: Yes (Life-Threatening, Hospitalization)
  Sender: FDA-Public Use
  Company Number: PHHY2013JP032681

PATIENT
  Age: 19 Year
  Sex: Male

DRUGS (5)
  1. TACROLIMUS [Suspect]
     Indication: COLITIS ULCERATIVE
     Route: 048
  2. PREDNISOLONE [Suspect]
     Indication: PYODERMA GANGRENOSUM
     Dosage: 0.6 MG/KG, UNK
  3. IMURAN [Suspect]
     Indication: COLITIS ULCERATIVE
     Dosage: 50 MG, UNK
  4. CORTICO [Concomitant]
     Indication: COLITIS ULCERATIVE
  5. AMINOSALICYLATE CALCIUM [Concomitant]
     Indication: COLITIS ULCERATIVE

REACTIONS (10)
  - Peritonitis [Recovered/Resolved]
  - Gastroduodenitis [Recovered/Resolved]
  - Gastric mucosal lesion [Recovered/Resolved]
  - Enteritis [Recovered/Resolved]
  - Colitis ulcerative [Recovered/Resolved]
  - Hypovolaemic shock [Recovered/Resolved]
  - Haematochezia [Recovered/Resolved]
  - Melaena [Recovered/Resolved]
  - Cytomegalovirus infection [Recovered/Resolved]
  - Gastrointestinal perforation [Recovered/Resolved]
